FAERS Safety Report 8599490-2 (Version None)
Quarter: 2012Q3

REPORT INFORMATION
  Report Type: 
  Country: None (occurrence: None)
  Receive Date: 20120816
  Receipt Date: 20120801
  Transmission Date: 20120928
  Serious: No
  Sender: FDA-Public Use
  Company Number: US-ALLERGAN-1206880US

PATIENT
  Sex: Male

DRUGS (5)
  1. LASTACAFT [Suspect]
     Indication: CONJUNCTIVITIS ALLERGIC
  2. BACTIN [Concomitant]
     Indication: EYE PRURITUS
     Dosage: BID, OU
     Route: 047
  3. ACULAR [Concomitant]
     Indication: PRODUCT USED FOR UNKNOWN INDICATION
     Dosage: 2 GTT, QID
     Route: 047
  4. LASTACAFT [Suspect]
     Indication: EYE ALLERGY
     Dosage: UNK
     Route: 047
     Dates: start: 20120321, end: 20120322
  5. BACTIN [Concomitant]
     Indication: EYE DISCHARGE

REACTIONS (9)
  - IMPAIRED DRIVING ABILITY [None]
  - LACRIMATION INCREASED [None]
  - VISION BLURRED [None]
  - SECRETION DISCHARGE [None]
  - EYELID SENSORY DISORDER [None]
  - OCULAR HYPERAEMIA [None]
  - EYE IRRITATION [None]
  - EYE SWELLING [None]
  - EYELID PTOSIS [None]
